FAERS Safety Report 15696115 (Version 2)
Quarter: 2018Q4

REPORT INFORMATION
  Report Type: Spontaneous
  Country: BR (occurrence: BR)
  Receive Date: 20181206
  Receipt Date: 20181210
  Transmission Date: 20190205
  Serious: Yes (Death, Hospitalization)
  Sender: FDA-Public Use
  Company Number: BR-CELGENEUS-BRA-20181200568

PATIENT
  Sex: Female

DRUGS (1)
  1. VIDAZA [Suspect]
     Active Substance: AZACITIDINE
     Indication: MYELODYSPLASTIC SYNDROME
     Route: 065
     Dates: start: 20170104

REACTIONS (3)
  - Myelodysplastic syndrome [Fatal]
  - Infection [Fatal]
  - Haemorrhagic stroke [Unknown]

NARRATIVE: CASE EVENT DATE: 2018
